FAERS Safety Report 11078483 (Version 1)
Quarter: 2015Q2

REPORT INFORMATION
  Report Type: Spontaneous
  Country: US (occurrence: US)
  Receive Date: 20150430
  Receipt Date: 20150430
  Transmission Date: 20150821
  Serious: No
  Sender: FDA-Public Use
  Company Number: US-ENDO PHARMACEUTICALS INC.-AMLO20140018

PATIENT
  Sex: Female

DRUGS (1)
  1. AMLODIPINE BESYLATE TABLETS 5MG [Suspect]
     Active Substance: AMLODIPINE BESYLATE
     Indication: PRODUCT USED FOR UNKNOWN INDICATION
     Route: 048
     Dates: start: 2013

REACTIONS (4)
  - Ear discomfort [Unknown]
  - Nasal dryness [Unknown]
  - Sinus headache [Unknown]
  - Dry mouth [Unknown]

NARRATIVE: CASE EVENT DATE: 2014
